FAERS Safety Report 9355220 (Version 2)
Quarter: 2013Q4

REPORT INFORMATION
  Report Type: Report from Study
  Country: NL (occurrence: NL)
  Receive Date: 20130619
  Receipt Date: 20131014
  Transmission Date: 20140711
  Serious: Yes (Other)
  Sender: FDA-Public Use
  Company Number: PHHY2013NL061551

PATIENT
  Age: 57 Year
  Sex: Female

DRUGS (5)
  1. ZOMETA [Suspect]
     Indication: BREAST CANCER METASTATIC
     Dosage: 4 MG/ 5 ML, ONCE PER 6 WEEKS
     Route: 042
  2. ZOMETA [Suspect]
     Dosage: 4 MG/ 5 ML, ONCE PER 6 WEEKS
     Route: 042
     Dates: start: 20081125
  3. ZOMETA [Suspect]
     Dosage: 4 MG/ 5 ML, ONCE PER 6 WEEKS
     Route: 042
     Dates: start: 20130504
  4. ZOMETA [Suspect]
     Dosage: 4 MG/ 5 ML, ONCE PER 6 WEEKS
     Route: 042
     Dates: start: 20130614
  5. ZOMETA [Suspect]
     Dosage: 4 MG PER 100 ML ONCE EVERY 4 WEEKS
     Route: 042

REACTIONS (3)
  - Osteonecrosis of jaw [Unknown]
  - Impaired healing [Unknown]
  - Abscess jaw [Unknown]
